FAERS Safety Report 5460030-8 (Version None)
Quarter: 2007Q3

REPORT INFORMATION
  Report Type: 
  Country: None (occurrence: None)
  Receive Date: 20070919
  Receipt Date: 20070510
  Transmission Date: 20080115
  Serious: Yes (Other)
  Sender: FDA-Public Use
  Company Number: US-ASTRAZENECA-2007UW11257

PATIENT
  Age: 38 Year
  Sex: Female
  Weight: 90.7 kg

DRUGS (4)
  1. SEROQUEL [Suspect]
     Indication: BIPOLAR DISORDER
     Route: 048
  2. COGENTIN [Concomitant]
  3. LAMICTAL [Concomitant]
  4. LITHIUM [Concomitant]

REACTIONS (1)
  - TARDIVE DYSKINESIA [None]
